FAERS Safety Report 18927975 (Version 1)
Quarter: 2021Q1

REPORT INFORMATION
  Report Type: Spontaneous
  Country: AU (occurrence: AU)
  Receive Date: 20210223
  Receipt Date: 20210223
  Transmission Date: 20210420
  Serious: Yes (Other)
  Sender: FDA-Public Use
  Company Number: AU-ROCHE-2775872

PATIENT
  Age: 15 Year
  Sex: Female

DRUGS (3)
  1. FAMOTIDINE. [Concomitant]
     Active Substance: FAMOTIDINE
     Indication: PRODUCT USED FOR UNKNOWN INDICATION
     Route: 065
  2. XOLAIR [Suspect]
     Active Substance: OMALIZUMAB
     Indication: CHRONIC SPONTANEOUS URTICARIA
     Route: 065
  3. XOLAIR [Suspect]
     Active Substance: OMALIZUMAB
     Indication: ANGIOEDEMA
     Dosage: 450 MG, EVERY 4 WEEKS (3 X 150 MG), 21 DAYS AGO
     Route: 065
     Dates: start: 202004

REACTIONS (11)
  - Anxiety [Unknown]
  - Inflammation [Unknown]
  - Drug tolerance [Unknown]
  - Obesity [Unknown]
  - Anti-thyroid antibody positive [Unknown]
  - Angioedema [Unknown]
  - Emotional distress [Unknown]
  - Euthyroid sick syndrome [Unknown]
  - Urticaria [Unknown]
  - Insomnia [Unknown]
  - Weight increased [Unknown]

NARRATIVE: CASE EVENT DATE: 202101
